FAERS Safety Report 17390511 (Version 1)
Quarter: 2020Q1

REPORT INFORMATION
  Report Type: Spontaneous
  Country: US (occurrence: US)
  Receive Date: 20200207
  Receipt Date: 20200207
  Transmission Date: 20200409
  Serious: Yes (Other)
  Sender: FDA-Public Use
  Company Number: US-AMGEN-USASP2020017308

PATIENT
  Age: 57 Year
  Sex: Female

DRUGS (2)
  1. PROLIA [Suspect]
     Active Substance: DENOSUMAB
     Dosage: UNK
     Route: 065
  2. PROLIA [Suspect]
     Active Substance: DENOSUMAB
     Indication: OSTEOPOROSIS
     Dosage: UNK
     Route: 065
     Dates: end: 2018

REACTIONS (12)
  - Muscle spasms [Unknown]
  - Pain [Unknown]
  - Renal transplant [Unknown]
  - Arthritis [Unknown]
  - Ankle fracture [Unknown]
  - Ulcer [Unknown]
  - Pruritus [Unknown]
  - Skin exfoliation [Unknown]
  - Blood calcium decreased [Unknown]
  - Foot fracture [Unknown]
  - Scab [Unknown]
  - Back pain [Unknown]

NARRATIVE: CASE EVENT DATE: 201804
